FAERS Safety Report 8029285-X (Version None)
Quarter: 2012Q1

REPORT INFORMATION
  Report Type: 
  Country: None (occurrence: None)
  Receive Date: 20120106
  Receipt Date: 20120105
  Transmission Date: 20120608
  Serious: Yes (Death, Life-Threatening, Hospitalization, Disabling, Other)
  Sender: FDA-Public Use
  Company Number: AU-PFIZER INC-2011239170

PATIENT
  Age: 86 Year
  Sex: Male
  Weight: 70 kg

DRUGS (9)
  1. WARFARIN SODIUM [Interacting]
     Indication: THROMBOSIS PROPHYLAXIS
     Dosage: 3 MG DAILY ON AVERAGE
     Route: 048
     Dates: end: 20110901
  2. LASIX [Concomitant]
     Indication: MYOCARDIAL ISCHAEMIA
  3. MINIPRESS [Concomitant]
     Indication: HYPERTENSION
     Dosage: 1 MG, 1X/DAY AT NIGHT
     Route: 048
     Dates: end: 20110901
  4. ALDACTONE [Concomitant]
     Indication: HYPERTENSION
     Dosage: 25 MG, 1X/DAY
     Route: 048
     Dates: end: 20110901
  5. WARFARIN SODIUM [Interacting]
     Indication: ATRIAL FIBRILLATION
  6. ALDACTONE [Concomitant]
     Indication: MYOCARDIAL ISCHAEMIA
  7. PRISTIQ [Suspect]
     Indication: DEPRESSION
     Dosage: 50 MG, 1X/DAY
     Route: 048
     Dates: start: 20110511, end: 20110901
  8. MINIPRESS [Concomitant]
     Indication: MYOCARDIAL ISCHAEMIA
  9. LASIX [Concomitant]
     Indication: HYPERTENSION
     Dosage: 40 MG, 1X/DAY
     Route: 048
     Dates: end: 20110901

REACTIONS (14)
  - DRUG INTERACTION [None]
  - CEREBRAL HAEMORRHAGE [None]
  - INCONTINENCE [None]
  - CEREBRAL DISORDER [None]
  - CARDIAC DISORDER [None]
  - COGNITIVE DISORDER [None]
  - INTERNATIONAL NORMALISED RATIO INCREASED [None]
  - LOWER RESPIRATORY TRACT INFECTION [None]
  - INTRA-ABDOMINAL HAEMATOMA [None]
  - MOTOR DYSFUNCTION [None]
  - CEREBROVASCULAR ACCIDENT [None]
  - FALL [None]
  - RETROPERITONEAL HAEMATOMA [None]
  - ATRIAL FIBRILLATION [None]
